FAERS Safety Report 6662860-3 (Version None)
Quarter: 2010Q1

REPORT INFORMATION
  Report Type: 
  Country: None (occurrence: None)
  Receive Date: 20100322
  Receipt Date: 20100315
  Transmission Date: 20100710
  Serious: No
  Sender: FDA-Public Use
  Company Number: 2010-00335

PATIENT
  Age: 73 Year
  Sex: Male
  Weight: 96.1626 kg

DRUGS (3)
  1. ZICAM COLD REMEDY NASAL GEL [Suspect]
     Dosage: SPORADIC, SPORADIC USE : 2-3YR AGO-A FEW MONS AGO
  2. ZICAM COLD REMEDY NASAL GEL [Suspect]
     Dosage: SPORADIC, SPORADIC USE : 2-3YR AGO-A FEW MONS AGO
  3. LIPITOR [Concomitant]

REACTIONS (2)
  - ANOSMIA [None]
  - NASAL DISCOMFORT [None]
